FAERS Safety Report 7299057-2 (Version None)
Quarter: 2011Q1

REPORT INFORMATION
  Report Type: 
  Country: None (occurrence: None)
  Receive Date: 20110217
  Receipt Date: 20110215
  Transmission Date: 20110831
  Serious: Yes (Hospitalization, Other)
  Sender: FDA-Public Use
  Company Number: VE-ABBOTT-11P-178-0699327-00

PATIENT
  Sex: Female

DRUGS (3)
  1. HUMIRA [Suspect]
     Indication: RHEUMATOID ARTHRITIS
     Route: 058
     Dates: start: 20100105, end: 20101001
  2. ARAVAT [Concomitant]
     Indication: RHEUMATOID ARTHRITIS
     Dates: start: 20100105
  3. HUMIRA [Suspect]
     Route: 058
     Dates: start: 20101101, end: 20101201

REACTIONS (2)
  - BRONCHITIS [None]
  - VASCULITIS [None]
